FAERS Safety Report 15362989 (Version 1)
Quarter: 2018Q3

REPORT INFORMATION
  Report Type: Report from Study
  Country: BE (occurrence: BE)
  Receive Date: 20180907
  Receipt Date: 20180907
  Transmission Date: 20181010
  Serious: Yes (Other)
  Sender: FDA-Public Use
  Company Number: BE-JNJFOC-20180905037

PATIENT

DRUGS (1)
  1. INFLIXIMAB, RECOMBINANT [Suspect]
     Active Substance: INFLIXIMAB
     Indication: CROHN^S DISEASE
     Route: 042

REACTIONS (13)
  - Basal cell carcinoma [Unknown]
  - Drug intolerance [Unknown]
  - Pneumonia [Unknown]
  - Arthritis [Unknown]
  - Liver function test increased [Unknown]
  - Off label use [Unknown]
  - Product use issue [Unknown]
  - Renal cell carcinoma [Unknown]
  - Infection [Unknown]
  - Arthralgia [Unknown]
  - Infusion related reaction [Unknown]
  - Therapeutic response decreased [Unknown]
  - Skin cancer [Unknown]
